FAERS Safety Report 18108291 (Version 3)
Quarter: 2023Q2

REPORT INFORMATION
  Report Type: Spontaneous
  Country: ES (occurrence: ES)
  Receive Date: 20200804
  Receipt Date: 20230608
  Transmission Date: 20230721
  Serious: Yes (Death, Hospitalization, Other)
  Sender: FDA-Public Use
  Company Number: ES-MYLANLABS-2020M1069363

PATIENT
  Age: 41 Year
  Sex: Male

DRUGS (8)
  1. ACETAMINOPHEN\TRAMADOL [Interacting]
     Active Substance: ACETAMINOPHEN\TRAMADOL
     Indication: Spinal osteoarthritis
     Dosage: UNK, QD (6-12 TABLETS DAILY)
     Route: 065
  2. ACETAMINOPHEN\TRAMADOL [Interacting]
     Active Substance: ACETAMINOPHEN\TRAMADOL
     Dosage: 12 DOSAGE FORM, QD
     Route: 065
  3. VENLAFAXINE [Interacting]
     Active Substance: VENLAFAXINE HYDROCHLORIDE
     Indication: Adjustment disorder with depressed mood
     Dosage: 150 MILLIGRAM, QD
     Route: 065
  4. DICLOFENAC SODIUM [Interacting]
     Active Substance: DICLOFENAC SODIUM
     Indication: Antiinflammatory therapy
     Dosage: UNK
     Route: 065
  5. DIAZEPAM [Suspect]
     Active Substance: DIAZEPAM
     Indication: Product used for unknown indication
     Dosage: 2 MILLIGRAM, HS, AT NIGHT
     Route: 065
  6. LACTATED RINGERS SOLUTION [Concomitant]
     Active Substance: CALCIUM CHLORIDE\POTASSIUM CHLORIDE\SODIUM CHLORIDE\SODIUM LACTATE
     Indication: Ear haemorrhage
     Dosage: 3 LITER
     Route: 065
  7. BERIPLEX HS [Concomitant]
     Active Substance: COAGULATION FACTOR IX HUMAN\COAGULATION FACTOR VII HUMAN\COAGULATION FACTOR X HUMAN\PROTEIN C\PROTEI
     Indication: Ear haemorrhage
     Dosage: UNK, 4 VIALS
     Route: 065
  8. MIDAZOLAM [Concomitant]
     Active Substance: MIDAZOLAM
     Indication: Product used for unknown indication
     Dosage: 15 MILLIGRAM
     Route: 065

REACTIONS (19)
  - Pulmonary contusion [Fatal]
  - Craniocerebral injury [Fatal]
  - Pulse absent [Fatal]
  - Ear haemorrhage [Fatal]
  - Coma [Fatal]
  - Bradycardia [Fatal]
  - Hypotension [Fatal]
  - Fall [Fatal]
  - Accident at work [Fatal]
  - Cognitive disorder [Unknown]
  - Sensory disturbance [Unknown]
  - Confusional state [Unknown]
  - Dizziness [Unknown]
  - Toxicity to various agents [Unknown]
  - Mydriasis [Unknown]
  - Skull fractured base [Unknown]
  - Forearm fracture [Unknown]
  - Serotonin syndrome [Unknown]
  - Drug interaction [Unknown]
